FAERS Safety Report 5378094-9 (Version None)
Quarter: 2007Q3

REPORT INFORMATION
  Report Type: 
  Country: None (occurrence: None)
  Receive Date: 20070702
  Receipt Date: 20070702
  Transmission Date: 20080115
  Serious: Yes (Death, Hospitalization)
  Sender: FDA-Public Use
  Company Number: None

PATIENT
  Age: 73 Year
  Sex: Male
  Weight: 61 kg

DRUGS (6)
  1. WARFARIN SODIUM [Suspect]
     Indication: ATRIAL FIBRILLATION
     Dosage: 5 MG QOD 2.5 MG QOD
  2. WARFARIN SODIUM [Suspect]
     Indication: MITRAL VALVE REPLACEMENT
     Dosage: 5 MG QOD 2.5 MG QOD
  3. ZOCOR [Concomitant]
  4. TOPROL-XL [Concomitant]
  5. TORSEMIDE [Concomitant]
  6. DIGOXIN [Concomitant]

REACTIONS (4)
  - CEREBRAL HAEMORRHAGE [None]
  - DYSARTHRIA [None]
  - MEMORY IMPAIRMENT [None]
  - SUBARACHNOID HAEMORRHAGE [None]
